FAERS Safety Report 8792024 (Version 4)
Quarter: 2012Q4

REPORT INFORMATION
  Report Type: 
  Country: US (occurrence: US)
  Receive Date: 20120918
  Receipt Date: 20121108
  Transmission Date: 20130627
  Serious: Yes (Life-Threatening, Hospitalization, Other)
  Sender: FDA-Public Use
  Company Number: US-MILLENNIUM PHARMACEUTICALS, INC.-2012-06479

PATIENT
  Age: 19 Year
  Sex: Female
  Weight: 72.3 kg

DRUGS (11)
  1. VELCADE [Suspect]
     Indication: ACUTE LYMPHOCYTIC LEUKAEMIA
     Dosage: 1.3 mg/m2, Cyclic
     Route: 040
     Dates: start: 20120807, end: 20120818
  2. DOXORUBICIN [Suspect]
     Indication: ACUTE LYMPHOCYTIC LEUKAEMIA
     Dosage: 60 mg/m2, Cyclic
     Route: 042
     Dates: start: 20120807, end: 20120808
  3. HYDROCORTISONE [Suspect]
     Indication: ACUTE LYMPHOCYTIC LEUKAEMIA
     Dosage: UNK UNK, Cyclic
     Dates: start: 20120807, end: 20120905
  4. CYTARABINE [Suspect]
     Indication: ACUTE LYMPHOCYTIC LEUKAEMIA
     Dosage: UNK UNK, Cyclic
     Route: 037
     Dates: start: 20120807, end: 20120905
  5. CYTARABINE [Suspect]
     Dosage: 3000 mg/m2, Cyclic
     Route: 042
     Dates: start: 20120807, end: 20120905
  6. ASPARAGINASE [Suspect]
     Indication: ACUTE LYMPHOCYTIC LEUKAEMIA
     Dosage: UNK UNK, Cyclic
     Dates: start: 20120807, end: 20120829
  7. METHOTREXATE [Suspect]
     Indication: ACUTE LYMPHOCYTIC LEUKAEMIA
     Dosage: UNK, Cyclic
     Route: 037
     Dates: start: 20120807, end: 20120905
  8. METHOTREXATE [Suspect]
     Dosage: 500 mg/m2, Cyclic
     Route: 042
     Dates: start: 20120807, end: 20120905
  9. METHOTREXATE [Suspect]
     Dosage: 4500 mg/m2, Cyclic
     Route: 042
     Dates: start: 20120807, end: 20120905
  10. PREDNISONE [Suspect]
     Indication: ACUTE LYMPHOCYTIC LEUKAEMIA
     Dosage: 20 mg/m2, Cyclic
     Route: 048
     Dates: start: 20120807, end: 20120904
  11. VINCRISTINE [Suspect]
     Indication: ACUTE LYMPHOCYTIC LEUKAEMIA
     Dosage: 1.5 mg/m2, Cyclic
     Route: 040
     Dates: start: 20120807, end: 20120829

REACTIONS (15)
  - Hypotension [Not Recovered/Not Resolved]
  - Cytokine release syndrome [Not Recovered/Not Resolved]
  - Caecitis [Not Recovered/Not Resolved]
  - Hypoxia [Not Recovered/Not Resolved]
  - Hypokalaemia [Not Recovered/Not Resolved]
  - Encephalopathy [Not Recovered/Not Resolved]
  - Syncope [Not Recovered/Not Resolved]
  - Mucosal inflammation [Not Recovered/Not Resolved]
  - Escherichia bacteraemia [Not Recovered/Not Resolved]
  - Pancytopenia [Not Recovered/Not Resolved]
  - Sepsis [Unknown]
  - Multi-organ failure [Unknown]
  - Cardiac arrest [Unknown]
  - Hyperglycaemia [Not Recovered/Not Resolved]
  - Cardiac failure [Unknown]
